FAERS Safety Report 18139516 (Version 2)
Quarter: 2020Q3

REPORT INFORMATION
  Report Type: Spontaneous
  Country: US (occurrence: US)
  Receive Date: 20200812
  Receipt Date: 20200812
  Transmission Date: 20201103
  Serious: Yes (Death, Other)
  Sender: FDA-Public Use
  Company Number: US-GLAXOSMITHKLINE-US2020157341

PATIENT
  Age: 71 Year

DRUGS (1)
  1. RANITIDINE. [Suspect]
     Active Substance: RANITIDINE
     Dates: start: 20181215, end: 20190815

REACTIONS (4)
  - Hepatic cancer [Unknown]
  - Neoplasm malignant [Fatal]
  - Pancreatic carcinoma [Unknown]
  - Bone cancer [Unknown]
